FAERS Safety Report 6615288-6 (Version None)
Quarter: 2010Q1

REPORT INFORMATION
  Report Type: 
  Country: None (occurrence: None)
  Receive Date: 20100301
  Receipt Date: 20100217
  Transmission Date: 20100710
  Serious: Yes (Hospitalization)
  Sender: FDA-Public Use
  Company Number: NL-1180914

PATIENT
  Age: 70 Year
  Sex: Male

DRUGS (6)
  1. FLUORESCITE [Suspect]
     Indication: ANGIOGRAM RETINA
     Dosage: 1000 MG INTRAVENOUS BOLUS
     Route: 040
     Dates: start: 20090331, end: 20090331
  2. MIXTARD (INSULIN HUMAN) [Concomitant]
  3. ASCAL (CARBASALATE CALCIUM) [Concomitant]
  4. METOPROLOLSUCCINAAT SANDOZ(METOPROLOL SUCCINATE) [Concomitant]
  5. ENALAPRILMALEAAT (ENALAPRIL MALEATE) [Concomitant]
  6. MYDRAISERT (MYDRIN P) [Concomitant]

REACTIONS (6)
  - ABDOMINAL PAIN [None]
  - HYPERHIDROSIS [None]
  - MALAISE [None]
  - NAUSEA [None]
  - SYNCOPE [None]
  - VOMITING [None]
